FAERS Safety Report 18278325 (Version 3)
Quarter: 2020Q4

REPORT INFORMATION
  Report Type: Spontaneous
  Country: US (occurrence: US)
  Receive Date: 20200917
  Receipt Date: 20201014
  Transmission Date: 20210113
  Serious: No
  Sender: FDA-Public Use
  Company Number: US-PFIZER INC-2019405910

PATIENT
  Age: 7 Year
  Sex: Male
  Weight: 19.05 kg

DRUGS (1)
  1. GENOTROPIN [Suspect]
     Active Substance: SOMATROPIN
     Indication: SMALL FOR DATES BABY
     Dosage: 1 MG, DAILY (ONCE A NIGHT INJECTION)
     Dates: start: 20190820

REACTIONS (5)
  - Device information output issue [Unknown]
  - Device breakage [Unknown]
  - Decreased appetite [Not Recovered/Not Resolved]
  - Drug dose omission by device [Unknown]
  - Device leakage [Unknown]

NARRATIVE: CASE EVENT DATE: 20200901
